FAERS Safety Report 22099786 (Version 1)
Quarter: 2023Q1

REPORT INFORMATION
  Report Type: Spontaneous
  Country: IL (occurrence: IL)
  Receive Date: 20230315
  Receipt Date: 20230315
  Transmission Date: 20230417
  Serious: Yes (Death)
  Sender: FDA-Public Use
  Company Number: IL-Ipsen Biopharmaceuticals, Inc.-2023-06495

PATIENT
  Age: 64 Year
  Sex: Female

DRUGS (1)
  1. LANREOTIDE ACETATE [Suspect]
     Active Substance: LANREOTIDE ACETATE
     Indication: Neuroendocrine tumour
     Dosage: MOST RECENT SOMATULINE INJECTION ON 25-OCT-2022,
     Route: 058
     Dates: start: 20170217

REACTIONS (1)
  - General physical health deterioration [Fatal]
